FAERS Safety Report 9002298 (Version 1)
Quarter: 2013Q1

REPORT INFORMATION
  Report Type: Report from Study
  Country: US (occurrence: US)
  Receive Date: 20130107
  Receipt Date: 20130107
  Transmission Date: 20140127
  Serious: Yes (Other)
  Sender: FDA-Public Use
  Company Number: US-PFIZER INC-2012305390

PATIENT
  Age: 52 Year
  Sex: Female

DRUGS (2)
  1. ENBREL [Suspect]
     Indication: RHEUMATOID ARTHRITIS
     Dosage: 50 MG, WEEKLY
     Dates: start: 20050101
  2. MORPHINE SULFATE [Suspect]
     Indication: ARTHRALGIA
     Dosage: UNK

REACTIONS (9)
  - Intentional drug misuse [Recovered/Resolved]
  - Movement disorder [Recovered/Resolved]
  - Neuropathy peripheral [Recovered/Resolved]
  - Sensory loss [Recovered/Resolved]
  - Musculoskeletal disorder [Recovered/Resolved]
  - Muscular weakness [Recovered/Resolved]
  - Hot flush [Recovered/Resolved]
  - Breast swelling [Recovered/Resolved]
  - Abdominal distension [Recovered/Resolved]
